FAERS Safety Report 23569647 (Version 1)
Quarter: 2024Q1

REPORT INFORMATION
  Report Type: Spontaneous
  Country: SE (occurrence: SE)
  Receive Date: 20240227
  Receipt Date: 20240227
  Transmission Date: 20240409
  Serious: Yes (Other)
  Sender: FDA-Public Use
  Company Number: None

PATIENT
  Age: 8 Year
  Sex: Male
  Weight: 29 kg

DRUGS (3)
  1. MONTELUKAST [Suspect]
     Active Substance: MONTELUKAST SODIUM
     Indication: Asthma
     Dosage: 5 MG 1 TABLET A DAY
     Dates: start: 20220124, end: 20230110
  2. ALBUTEROL SULFATE [Concomitant]
     Active Substance: ALBUTEROL SULFATE
     Dosage: 200 MICROGRAMS/DOSE AS REQUIRED
     Dates: start: 20190101
  3. BUDESONIDE [Concomitant]
     Active Substance: BUDESONIDE
     Dosage: 100 MICROGRAMS/DOSE 2 PUFFS/DAY
     Dates: start: 20210501

REACTIONS (12)
  - Decreased appetite [Recovering/Resolving]
  - Weight decreased [Recovering/Resolving]
  - Skin irritation [Recovering/Resolving]
  - Depressed mood [Not Recovered/Not Resolved]
  - Respiratory tract infection [Not Recovered/Not Resolved]
  - Abdominal pain [Not Recovered/Not Resolved]
  - Arthralgia [Recovering/Resolving]
  - Mood swings [Recovering/Resolving]
  - Dysphagia [Not Recovered/Not Resolved]
  - Dyspepsia [Not Recovered/Not Resolved]
  - Restlessness [Not Recovered/Not Resolved]
  - Somnambulism [Recovered/Resolved]

NARRATIVE: CASE EVENT DATE: 20220501
